FAERS Safety Report 5155004-0 (Version None)
Quarter: 2006Q4

REPORT INFORMATION
  Report Type: 
  Country: None (occurrence: None)
  Receive Date: 20061120
  Receipt Date: 20061120
  Transmission Date: 20070319
  Serious: Yes (Other)
  Sender: FDA-Public Use
  Company Number: None

PATIENT
  Age: 58 Year
  Sex: Male

DRUGS (13)
  1. FENTANYL [Suspect]
     Indication: INTERVERTEBRAL DISC DEGENERATION
     Dosage: 2000 MG/HR
     Dates: end: 20060101
  2. ATIVAN [Concomitant]
  3. PAXIL [Concomitant]
  4. CATAPRES [Concomitant]
  5. BENADRYL [Concomitant]
  6. INSULIN [Concomitant]
  7. GLUCOVANCE [Concomitant]
  8. LIPITOR [Concomitant]
  9. NORVASC [Concomitant]
  10. LOTENSIN [Concomitant]
  11. TOPROL-XL [Concomitant]
  12. LASIX [Concomitant]
  13. ASPIRIN [Concomitant]

REACTIONS (1)
  - RASH [None]
